FAERS Safety Report 7519148-8 (Version None)
Quarter: 2011Q2

REPORT INFORMATION
  Report Type: 
  Country: None (occurrence: None)
  Receive Date: 20110523
  Receipt Date: 20110516
  Transmission Date: 20111010
  Serious: Yes (Other)
  Sender: FDA-Public Use
  Company Number: 2011SP022293

PATIENT
  Sex: Female

DRUGS (1)
  1. NUVARING [Suspect]
     Indication: PRODUCT USED FOR UNKNOWN INDICATION
     Dosage: ; VAG
     Route: 067
     Dates: start: 20110301

REACTIONS (3)
  - DEVICE DISLOCATION [None]
  - CONVULSION [None]
  - VAGINAL HAEMORRHAGE [None]
